FAERS Safety Report 15559313 (Version 2)
Quarter: 2018Q4

REPORT INFORMATION
  Report Type: Spontaneous
  Country: US (occurrence: US)
  Receive Date: 20181029
  Receipt Date: 20181105
  Transmission Date: 20190205
  Serious: Yes (Hospitalization, Other)
  Sender: FDA-Public Use
  Company Number: US-AUROBINDO-AUR-APL-2018-052159

PATIENT
  Age: 28 Year
  Sex: Female

DRUGS (2)
  1. ACETAMINOPHEN. [Suspect]
     Active Substance: ACETAMINOPHEN
     Indication: SUICIDE ATTEMPT
     Dosage: 50 GRAM
     Route: 065
  2. ACETYLSALICYLIC ACID [Suspect]
     Active Substance: ASPIRIN
     Indication: SUICIDE ATTEMPT
     Dosage: 5 GRAM
     Route: 065

REACTIONS (7)
  - Toxicity to various agents [Unknown]
  - Metabolic acidosis [Unknown]
  - Hepatotoxicity [Recovered/Resolved]
  - Hypoacusis [Recovered/Resolved]
  - Exposure during pregnancy [Unknown]
  - Respiratory alkalosis [Unknown]
  - Suicide attempt [Unknown]
